FAERS Safety Report 16238319 (Version 3)
Quarter: 2020Q1

REPORT INFORMATION
  Report Type: Spontaneous
  Country: JP (occurrence: JP)
  Receive Date: 20190425
  Receipt Date: 20200311
  Transmission Date: 20200409
  Serious: Yes (Other)
  Sender: FDA-Public Use
  Company Number: JP-ELI_LILLY_AND_COMPANY-JP201904010816

PATIENT
  Age: 16 Year
  Sex: Female

DRUGS (4)
  1. HUMATROPE [Suspect]
     Active Substance: SOMATROPIN
     Indication: GROWTH HORMONE DEFICIENCY
     Dosage: 0.087 MG/KG, WEEKLY (1/W)
     Route: 058
  2. HUMATROPE [Suspect]
     Active Substance: SOMATROPIN
     Dosage: 0.175 MG/KG, WEEKLY (1/W)
     Route: 058
     Dates: start: 20190305
  3. HUMATROPE [Suspect]
     Active Substance: SOMATROPIN
     Dosage: 1 MG, DAILY
     Route: 058
     Dates: end: 20190413
  4. HUMATROPE [Suspect]
     Active Substance: SOMATROPIN
     Dosage: 0.263 MG/KG, WEEKLY (1/W)
     Route: 058

REACTIONS (2)
  - Hepatic function abnormal [Recovered/Resolved]
  - Oedema [Recovered/Resolved]
